FAERS Safety Report 16424873 (Version 1)
Quarter: 2019Q2

REPORT INFORMATION
  Report Type: Spontaneous
  Country: US (occurrence: US)
  Receive Date: 20190613
  Receipt Date: 20190613
  Transmission Date: 20190711
  Serious: Yes (Other)
  Sender: FDA-Public Use
  Company Number: US-HIKMA PHARMACEUTICALS USA INC.-US-H14001-19-03850

PATIENT
  Age: 31 Year
  Sex: Female
  Weight: 75.36 kg

DRUGS (3)
  1. BENADRYL [Concomitant]
     Active Substance: DIPHENHYDRAMINE HYDROCHLORIDE
     Indication: PRODUCT USED FOR UNKNOWN INDICATION
     Route: 065
  2. PROGESTERONE. [Suspect]
     Active Substance: PROGESTERONE
     Indication: IN VITRO FERTILISATION
     Route: 030
     Dates: start: 20190414, end: 20190508
  3. PROGESTERONE. [Suspect]
     Active Substance: PROGESTERONE
     Dosage: EVERY NIGHT
     Route: 030
     Dates: start: 20190522

REACTIONS (4)
  - Foetal death [Recovered/Resolved]
  - Exposure during pregnancy [Not Recovered/Not Resolved]
  - Injection site rash [Recovered/Resolved]
  - Off label use [Not Recovered/Not Resolved]

NARRATIVE: CASE EVENT DATE: 20190414
